FAERS Safety Report 12924241 (Version 3)
Quarter: 2016Q4

REPORT INFORMATION
  Report Type: Report from Study
  Country: US (occurrence: US)
  Receive Date: 20161109
  Receipt Date: 20161116
  Transmission Date: 20170207
  Serious: Yes (Hospitalization)
  Sender: FDA-Public Use
  Company Number: US-GILEAD-2016-0240222

PATIENT
  Age: 34 Year
  Sex: Female
  Weight: 48.73 kg

DRUGS (9)
  1. OXYGEN. [Concomitant]
     Active Substance: OXYGEN
  2. CIALIS [Concomitant]
     Active Substance: TADALAFIL
  3. TYVASO [Suspect]
     Active Substance: TREPROSTINIL
     Indication: PULMONARY ARTERIAL HYPERTENSION
     Dosage: 54 UG, QID
     Route: 065
     Dates: start: 20160726
  4. LEXAPRO [Concomitant]
     Active Substance: ESCITALOPRAM OXALATE
  5. ADCIRCA [Concomitant]
     Active Substance: TADALAFIL
     Dates: start: 20160107
  6. VENTAVIS [Concomitant]
     Active Substance: ILOPROST
  7. AMBRISENTAN [Suspect]
     Active Substance: AMBRISENTAN
     Indication: PULMONARY ARTERIAL HYPERTENSION
     Dosage: 10 MG, QD
     Route: 065
     Dates: start: 20160314
  8. NEURONTIN [Concomitant]
     Active Substance: GABAPENTIN
  9. DEPO-PROVERA [Concomitant]
     Active Substance: MEDROXYPROGESTERONE ACETATE

REACTIONS (8)
  - Unevaluable event [Unknown]
  - Haemoptysis [Recovered/Resolved]
  - Somnolence [Recovered/Resolved]
  - Chest pain [Not Recovered/Not Resolved]
  - Fatigue [Not Recovered/Not Resolved]
  - Gait disturbance [Recovered/Resolved]
  - Dizziness [Recovered/Resolved]
  - Dyspnoea [Not Recovered/Not Resolved]

NARRATIVE: CASE EVENT DATE: 20161024
